FAERS Safety Report 4963165-9 (Version None)
Quarter: 2006Q2

REPORT INFORMATION
  Report Type: 
  Country: None (occurrence: None)
  Receive Date: 20060405
  Receipt Date: 20051122
  Transmission Date: 20061013
  Serious: Yes (Hospitalization)
  Sender: FDA-Public Use
  Company Number: US-MERCK-0511USA04101

PATIENT
  Age: 68 Year
  Sex: Female
  Weight: 95 kg

DRUGS (16)
  1. VIOXX [Suspect]
     Indication: ARTHRITIS
     Route: 048
     Dates: start: 20020201, end: 20040901
  2. VIOXX [Suspect]
     Indication: ARTHRALGIA
     Route: 048
     Dates: start: 20020201, end: 20040901
  3. TYLENOL W/ CODEINE [Suspect]
     Indication: ARTHRITIS
     Route: 065
  4. TAMOXIFEN CITRATE [Concomitant]
     Indication: BREAST CANCER
     Route: 065
  5. DILTIAZEM MALATE [Concomitant]
     Route: 065
  6. MECLIZINE [Concomitant]
     Indication: VERTIGO
     Route: 065
  7. DIAZEPAM [Concomitant]
     Indication: NERVOUSNESS
     Route: 065
  8. TEMAZEPAM [Concomitant]
     Indication: NERVOUSNESS
     Route: 065
  9. FOSAMAX [Concomitant]
     Indication: OSTEOPOROSIS
     Route: 065
  10. FLONASE [Concomitant]
     Indication: ASTHMA
     Route: 065
  11. SINGULAIR [Concomitant]
     Indication: ASTHMA
     Route: 065
  12. INTAL [Concomitant]
     Indication: ASTHMA
     Route: 065
  13. ADVAIR DISKUS 100/50 [Concomitant]
     Indication: ASTHMA
     Route: 065
  14. ALBUTEROL [Concomitant]
     Indication: ASTHMA
     Route: 065
  15. NOVOLIN N [Concomitant]
     Indication: DIABETES MELLITUS
     Route: 065
  16. NOVOLOG [Concomitant]
     Indication: DIABETES MELLITUS
     Route: 065

REACTIONS (12)
  - ANXIETY [None]
  - CARDIAC FAILURE CONGESTIVE [None]
  - CATARACT [None]
  - DEEP VEIN THROMBOSIS [None]
  - DEPRESSION [None]
  - GASTROOESOPHAGEAL REFLUX DISEASE [None]
  - MIGRAINE [None]
  - MYOCARDIAL INFARCTION [None]
  - OEDEMA PERIPHERAL [None]
  - POST-TRAUMATIC STRESS DISORDER [None]
  - RHEUMATOID ARTHRITIS [None]
  - TRANSIENT ISCHAEMIC ATTACK [None]
